FAERS Safety Report 6249276-9 (Version None)
Quarter: 2009Q2

REPORT INFORMATION
  Report Type: 
  Country: None (occurrence: None)
  Receive Date: 20090629
  Receipt Date: 20090617
  Transmission Date: 20091009
  Serious: Yes (Hospitalization, Other)
  Sender: FDA-Public Use
  Company Number: US-MERCK-0808USA01436

PATIENT
  Age: 60 Year
  Sex: Female
  Weight: 95 kg

DRUGS (2)
  1. FOSAMAX [Suspect]
     Indication: OSTEOPOROSIS
     Route: 048
     Dates: start: 19980101
  2. FOSAMAX PLUS D [Suspect]
     Indication: OSTEOPOROSIS
     Route: 048
     Dates: start: 20060101, end: 20071001

REACTIONS (32)
  - ABSCESS [None]
  - ANGINA PECTORIS [None]
  - ARTHROPATHY [None]
  - BLOOD CHOLESTEROL INCREASED [None]
  - BONE DISORDER [None]
  - BREAST CANCER [None]
  - CARDIOVASCULAR DISORDER [None]
  - CARPAL TUNNEL SYNDROME [None]
  - CATARACT [None]
  - CORONARY ARTERY DISEASE [None]
  - DENTAL CARIES [None]
  - DIABETIC RETINOPATHY [None]
  - FOOT DEFORMITY [None]
  - FOOT FRACTURE [None]
  - GLAUCOMA [None]
  - HAEMORRHOIDS [None]
  - HYPERLIPIDAEMIA [None]
  - HYPERTENSION [None]
  - IMPAIRED HEALING [None]
  - LACRIMATION INCREASED [None]
  - MUSCULOSKELETAL DISORDER [None]
  - MUSCULOSKELETAL PAIN [None]
  - OPTIC NERVE CUP/DISC RATIO INCREASED [None]
  - ORAL INFECTION [None]
  - OSTEOARTHRITIS [None]
  - OSTEONECROSIS [None]
  - PALPITATIONS [None]
  - PANCYTOPENIA [None]
  - PERIODONTAL DISEASE [None]
  - RHEUMATOID ARTHRITIS [None]
  - SCIATICA [None]
  - SLEEP APNOEA SYNDROME [None]
